FAERS Safety Report 26105061 (Version 3)
Quarter: 2025Q4

REPORT INFORMATION
  Report Type: Spontaneous
  Country: US (occurrence: US)
  Receive Date: 20251130
  Receipt Date: 20251209
  Transmission Date: 20260117
  Serious: No
  Sender: ROCHE
  Company Number: US-ROCHE-10000447020

PATIENT
  Sex: Female

DRUGS (1)
  1. XOLAIR [Suspect]
     Active Substance: OMALIZUMAB
     Indication: Food allergy
     Dosage: FREQUENCY: 1, INTERVAL: 1 MONTH

REACTIONS (3)
  - Illness [Unknown]
  - Asthma [Unknown]
  - Nasopharyngitis [Unknown]
